FAERS Safety Report 17190659 (Version 8)
Quarter: 2020Q3

REPORT INFORMATION
  Report Type: Spontaneous
  Country: US (occurrence: US)
  Receive Date: 20191223
  Receipt Date: 20200717
  Transmission Date: 20201102
  Serious: Yes (Hospitalization, Other)
  Sender: FDA-Public Use
  Company Number: US-SA-2019SA353928

PATIENT

DRUGS (3)
  1. DUPIXENT [Suspect]
     Active Substance: DUPILUMAB
     Indication: PRODUCT USED FOR UNKNOWN INDICATION
     Dosage: 300 MG, QOW
     Route: 058
     Dates: start: 201911
  2. ENBREL [Suspect]
     Active Substance: ETANERCEPT
  3. DUPIXENT [Suspect]
     Active Substance: DUPILUMAB
     Dosage: 300 MG,QOW
     Route: 058

REACTIONS (18)
  - Decreased appetite [Unknown]
  - Productive cough [Not Recovered/Not Resolved]
  - Nausea [Unknown]
  - Illness [Unknown]
  - Sjogren^s syndrome [Unknown]
  - Pain [Unknown]
  - Abdominal discomfort [Unknown]
  - Vomiting [Unknown]
  - Breast mass [Unknown]
  - Dental caries [Not Recovered/Not Resolved]
  - Migraine [Unknown]
  - Arthralgia [Unknown]
  - Contrast media allergy [Unknown]
  - Eye pain [Unknown]
  - Oral infection [Unknown]
  - Headache [Unknown]
  - Unevaluable event [Unknown]
  - Tooth fracture [Not Recovered/Not Resolved]

NARRATIVE: CASE EVENT DATE: 201911
